FAERS Safety Report 22390036 (Version 1)
Quarter: 2023Q2

REPORT INFORMATION
  Report Type: Spontaneous
  Country: GB (occurrence: GB)
  Receive Date: 20230531
  Receipt Date: 20230531
  Transmission Date: 20230721
  Serious: Yes (Other)
  Sender: FDA-Public Use
  Company Number: GB-AUROBINDO-AUR-APL-2023-012617

PATIENT
  Sex: Male

DRUGS (2)
  1. CIPROFLOXACIN [Suspect]
     Active Substance: CIPROFLOXACIN
     Indication: Nasopharyngitis
     Dosage: UNK
     Route: 065
  2. CIPROFLOXACIN [Suspect]
     Active Substance: CIPROFLOXACIN
     Indication: Cough
     Dosage: 500 MILLIGRAM, BID; TWO TIMES A DAY (500 MG BID) (START DATE: 10-MAR-2023)
     Route: 048

REACTIONS (4)
  - Penis disorder [Not Recovered/Not Resolved]
  - Orchitis noninfective [Not Recovered/Not Resolved]
  - Testicular disorder [Not Recovered/Not Resolved]
  - Labelled drug-food interaction issue [Not Recovered/Not Resolved]

NARRATIVE: CASE EVENT DATE: 20230301
